FAERS Safety Report 14769032 (Version 1)
Quarter: 2018Q2

REPORT INFORMATION
  Report Type: Spontaneous
  Country: JP (occurrence: JP)
  Receive Date: 20180417
  Receipt Date: 20180417
  Transmission Date: 20180711
  Serious: Yes (Other)
  Sender: FDA-Public Use
  Company Number: JP-009507513-1804JPN001573J

PATIENT
  Sex: Female

DRUGS (2)
  1. BELSOMRA [Suspect]
     Active Substance: SUVOREXANT
     Dosage: 10 MG, UNK
     Route: 048
  2. BELSOMRA [Suspect]
     Active Substance: SUVOREXANT
     Dosage: 15 MG, UNK
     Route: 048
     Dates: start: 201710, end: 2017

REACTIONS (5)
  - Underdose [Unknown]
  - Helicobacter infection [Unknown]
  - Dizziness [Unknown]
  - Fungal infection [Unknown]
  - Middle insomnia [Unknown]

NARRATIVE: CASE EVENT DATE: 2017
